FAERS Safety Report 8182835-5 (Version None)
Quarter: 2012Q1

REPORT INFORMATION
  Report Type: 
  Country: None (occurrence: None)
  Receive Date: 20120305
  Receipt Date: 20120228
  Transmission Date: 20120608
  Serious: Yes (Disabling)
  Sender: FDA-Public Use
  Company Number: FR-US-EMD SERONO, INC.-7008751

PATIENT
  Sex: Female

DRUGS (3)
  1. PAROXETINE HYDROCHLORIDE [Suspect]
     Indication: PRODUCT USED FOR UNKNOWN INDICATION
     Route: 048
  2. REBIF [Suspect]
     Indication: MULTIPLE SCLEROSIS
     Route: 058
     Dates: start: 20020101, end: 20100526
  3. PRAZEPAM [Suspect]
     Indication: PRODUCT USED FOR UNKNOWN INDICATION
     Route: 048

REACTIONS (3)
  - PULMONARY ARTERIAL HYPERTENSION [None]
  - COR PULMONALE CHRONIC [None]
  - DYSPNOEA EXERTIONAL [None]
